FAERS Safety Report 4455385-7 (Version None)
Quarter: 2004Q3

REPORT INFORMATION
  Report Type: 
  Country: None (occurrence: None)
  Receive Date: 20040825
  Receipt Date: 20040707
  Transmission Date: 20050211
  Serious: No
  Sender: FDA-Public Use
  Company Number: 207669

PATIENT
  Age: 73 Year
  Sex: Female

DRUGS (3)
  1. RAPTIVA [Suspect]
     Indication: PSORIASIS
     Dosage: 65 MG, SUBCUTANEOUS
     Route: 058
     Dates: start: 20040601
  2. STEROID INJECTIONS (STEROID NIJECTION NOS) [Concomitant]
  3. ZOCOR [Concomitant]

REACTIONS (2)
  - HERPES SIMPLEX [None]
  - VAGINAL MUCOSAL BLISTERING [None]
